FAERS Safety Report 8878986 (Version 1)
Quarter: 2012Q4

REPORT INFORMATION
  Report Type: 
  Country: FR (occurrence: FR)
  Receive Date: 20121026
  Receipt Date: 20121026
  Transmission Date: 20130627
  Serious: Yes (Hospitalization)
  Sender: FDA-Public Use
  Company Number: FR-BRISTOL-MYERS SQUIBB COMPANY-17048281

PATIENT
  Age: 80 Year
  Sex: Male

DRUGS (2)
  1. COUMADINE [Suspect]
     Dosage: stp on 17Apr12 Restarted on
19Apr-3mg/day
25apr-4mg/dy
27apr-5mg/dy
7may-6mg/day
     Route: 048
  2. LOVENOX [Suspect]
     Dosage: stopped on 14Apr12 restarted
23Apr12:0.5ml
     Route: 058

REACTIONS (8)
  - Hypoprothrombinaemia [Recovering/Resolving]
  - Anaemia [Recovering/Resolving]
  - Haematoma [Unknown]
  - Pneumonia [Unknown]
  - International normalised ratio increased [Unknown]
  - Epistaxis [Unknown]
  - General physical health deterioration [Unknown]
  - Fall [Unknown]
